FAERS Safety Report 20960944 (Version 1)
Quarter: 2022Q2

REPORT INFORMATION
  Report Type: Report from Study
  Country: US (occurrence: US)
  Receive Date: 20220615
  Receipt Date: 20220615
  Transmission Date: 20220720
  Serious: Yes (Hospitalization, Other)
  Sender: FDA-Public Use
  Company Number: US-NOVARTISPH-NVSC2022US135230

PATIENT
  Age: 61 Year
  Sex: Female

DRUGS (1)
  1. GILENYA [Suspect]
     Active Substance: FINGOLIMOD HYDROCHLORIDE
     Indication: Multiple sclerosis
     Dosage: 0.5 MG, QD
     Route: 048

REACTIONS (12)
  - Syncope [Unknown]
  - Dehydration [Unknown]
  - Constipation [Unknown]
  - Cerebrovascular accident [Unknown]
  - Multiple sclerosis relapse [Unknown]
  - Hypoaesthesia [Unknown]
  - Speech disorder [Unknown]
  - Cognitive disorder [Unknown]
  - Amnesia [Unknown]
  - Dizziness [Unknown]
  - Blindness [Unknown]
  - Retinal scar [Unknown]

NARRATIVE: CASE EVENT DATE: 20220101
